FAERS Safety Report 7636414-6 (Version None)
Quarter: 2011Q3

REPORT INFORMATION
  Report Type: 
  Country: None (occurrence: None)
  Receive Date: 20110726
  Receipt Date: 20110711
  Transmission Date: 20111222
  Serious: Yes (Other)
  Sender: FDA-Public Use
  Company Number: ES-WATSON-2011-08429

PATIENT
  Age: 30 Year
  Sex: Female

DRUGS (5)
  1. ROPIVACAINE HYDROCHLORIDE [Suspect]
     Dosage: 9 ML BOLUS OF 0.2%
     Route: 008
  2. ROPIVACAINE HYDROCHLORIDE [Suspect]
     Dosage: 0.2% INFUSION
  3. FENTANYL [Suspect]
     Indication: EPIDURAL ANAESTHESIA
     Dosage: 1 MG/ML AT 8 ML/HR
  4. FENTANYL [Suspect]
     Dosage: 50 UG, UNK
     Route: 008
  5. ROPIVACAINE HYDROCHLORIDE [Suspect]
     Indication: EPIDURAL ANAESTHESIA
     Dosage: 10 ML OF 0.75%

REACTIONS (2)
  - ANAESTHETIC COMPLICATION [None]
  - HORNER'S SYNDROME [None]
